FAERS Safety Report 19875238 (Version 1)
Quarter: 2021Q3

REPORT INFORMATION
  Report Type: Spontaneous
  Country: US (occurrence: US)
  Receive Date: 20210923
  Receipt Date: 20210923
  Transmission Date: 20211014
  Serious: Yes (Hospitalization, Other)
  Sender: FDA-Public Use
  Company Number: NVSC2021US206687

PATIENT
  Sex: Female

DRUGS (10)
  1. RUCAPARIB [Suspect]
     Active Substance: RUCAPARIB
     Indication: OVARIAN CANCER
     Dosage: 1 DF, BID
     Route: 048
     Dates: start: 20210418
  2. RUCAPARIB [Suspect]
     Active Substance: RUCAPARIB
     Dosage: 2 DF, BID
     Route: 048
     Dates: start: 20210426
  3. ONDANSETRON [Concomitant]
     Active Substance: ONDANSETRON
     Indication: PRODUCT USED FOR UNKNOWN INDICATION
     Dosage: UNK
     Route: 065
  4. RUCAPARIB [Suspect]
     Active Substance: RUCAPARIB
     Dosage: 400 MG, BID
     Route: 048
     Dates: start: 20210727
  5. VITAMIN B12 [Concomitant]
     Active Substance: CYANOCOBALAMIN
     Indication: PAIN
     Dosage: EVERY FRIDAY
     Route: 065
  6. RUCAPARIB [Suspect]
     Active Substance: RUCAPARIB
     Dosage: 1 DF, BID
     Route: 048
  7. RUCAPARIB [Suspect]
     Active Substance: RUCAPARIB
     Dosage: 500 MG, BID
     Route: 048
     Dates: start: 20210625
  8. CYMBALTA [Concomitant]
     Active Substance: DULOXETINE HYDROCHLORIDE
     Indication: PRODUCT USED FOR UNKNOWN INDICATION
     Dosage: UNK
     Route: 065
  9. ZOFRAN [Suspect]
     Active Substance: ONDANSETRON HYDROCHLORIDE
     Indication: NAUSEA
     Dosage: UNK
     Route: 065
  10. RUCAPARIB [Suspect]
     Active Substance: RUCAPARIB
     Dosage: 2 DF, BID
     Route: 048

REACTIONS (23)
  - Contusion [Unknown]
  - Pancreatitis [Unknown]
  - Somnolence [Not Recovered/Not Resolved]
  - Dysphagia [Unknown]
  - Impaired healing [Unknown]
  - Product label confusion [Unknown]
  - Feeling abnormal [Unknown]
  - Carbohydrate antigen 125 increased [Unknown]
  - Blood count abnormal [Not Recovered/Not Resolved]
  - Memory impairment [Unknown]
  - Skin discolouration [Unknown]
  - Abdominal pain upper [Unknown]
  - Abdominal distension [Unknown]
  - Renal impairment [Unknown]
  - Fall [Unknown]
  - Asthenia [Unknown]
  - Chest pain [Unknown]
  - Product dose omission in error [Unknown]
  - Vitamin B12 decreased [Unknown]
  - Sleep disorder [Unknown]
  - Joint dislocation [Unknown]
  - Constipation [Recovered/Resolved]
  - Fatigue [Recovering/Resolving]
